FAERS Safety Report 6174473-0 (Version None)
Quarter: 2009Q2

REPORT INFORMATION
  Report Type: 
  Country: None (occurrence: None)
  Receive Date: 20090430
  Receipt Date: 20080909
  Transmission Date: 20091009
  Serious: Yes (Disabling)
  Sender: FDA-Public Use
  Company Number: US-ASTRAZENECA-2008UW12293

PATIENT
  Age: 59 Year
  Sex: Male
  Weight: 99.8 kg

DRUGS (8)
  1. NEXIUM [Suspect]
     Indication: GASTROOESOPHAGEAL REFLUX DISEASE
     Route: 048
     Dates: start: 20080614, end: 20080619
  2. NEXIUM [Suspect]
     Route: 048
     Dates: start: 20080614, end: 20080619
  3. ATENOLOL [Concomitant]
  4. PLAVIX [Concomitant]
  5. VYTORIN [Concomitant]
  6. LISINOPRIL [Concomitant]
     Route: 048
  7. ASPIRIN [Concomitant]
  8. AVANDAMET [Concomitant]
     Dosage: 2-500 MG TAKE 1 TABLET DAILY

REACTIONS (6)
  - DRUG INEFFECTIVE [None]
  - DUODENITIS [None]
  - DYSPHAGIA [None]
  - ERYTHEMA [None]
  - GASTRITIS [None]
  - GASTROOESOPHAGEAL REFLUX DISEASE [None]
